FAERS Safety Report 6536714-7 (Version None)
Quarter: 2010Q1

REPORT INFORMATION
  Report Type: 
  Country: None (occurrence: None)
  Receive Date: 20100113
  Receipt Date: 20100105
  Transmission Date: 20100710
  Serious: Yes (Other)
  Sender: FDA-Public Use
  Company Number: US-PFIZER INC-2010001970

PATIENT
  Sex: Female

DRUGS (1)
  1. DILANTIN-125 [Suspect]
     Dosage: UNK

REACTIONS (4)
  - GINGIVAL SWELLING [None]
  - LYMPHOEDEMA [None]
  - MOOD SWINGS [None]
  - STEVENS-JOHNSON SYNDROME [None]
